FAERS Safety Report 9310868 (Version 2)
Quarter: 2013Q2

REPORT INFORMATION
  Report Type: Spontaneous
  Country: BR (occurrence: BR)
  Receive Date: 20130528
  Receipt Date: 20130612
  Transmission Date: 20140414
  Serious: Yes (Other)
  Sender: FDA-Public Use
  Company Number: BR-RANBAXY-2013R5-69464

PATIENT
  Age: 48 Year
  Sex: Male
  Weight: 80 kg

DRUGS (4)
  1. CEFUROXIME AXETIL [Suspect]
     Indication: KNEE ARTHROPLASTY
     Dosage: 250 MG, BID
     Route: 048
     Dates: start: 20130409, end: 20130410
  2. CEFUROXIME AXETIL [Suspect]
     Indication: KNEE ARTHROPLASTY
     Dosage: 500 MG, BID
     Route: 048
     Dates: start: 20130409, end: 20130410
  3. XARELTO [Concomitant]
     Indication: THROMBOSIS
     Dosage: 10 MG, QD
     Route: 065
  4. BI PROFENID [Concomitant]
     Indication: ANTIINFLAMMATORY THERAPY
     Dosage: 150 MG, BID
     Route: 065

REACTIONS (4)
  - Skin burning sensation [Recovered/Resolved]
  - Skin sensitisation [Recovered/Resolved]
  - Dyspnoea [Recovered/Resolved]
  - Dizziness [Recovered/Resolved]
